FAERS Safety Report 13456785 (Version 1)
Quarter: 2017Q2

REPORT INFORMATION
  Report Type: Spontaneous
  Country: US (occurrence: US)
  Receive Date: 20170419
  Receipt Date: 20170419
  Transmission Date: 20170830
  Serious: Yes (Hospitalization, Other)
  Sender: FDA-Public Use
  Company Number: US-PFIZER INC-2015393423

PATIENT
  Age: 51 Year
  Sex: Female

DRUGS (1)
  1. MEROPENEM. [Suspect]
     Active Substance: MEROPENEM
     Indication: ARTHRITIS
     Dosage: UNK
     Route: 042

REACTIONS (2)
  - Eosinophilic pneumonia [Recovered/Resolved]
  - Subcorneal pustular dermatosis [Recovered/Resolved]
